FAERS Safety Report 4785531-7 (Version None)
Quarter: 2005Q4

REPORT INFORMATION
  Report Type: 
  Country: None (occurrence: None)
  Receive Date: 20051003
  Receipt Date: 20050926
  Transmission Date: 20060501
  Serious: Yes (Hospitalization)
  Sender: FDA-Public Use
  Company Number: PHEH2005US10708

PATIENT
  Age: 8 Year
  Sex: Male

DRUGS (1)
  1. FOCALIN [Suspect]
     Indication: ATTENTION DEFICIT/HYPERACTIVITY DISORDER
     Dosage: 5 MG, QD
     Route: 048
     Dates: start: 20050913

REACTIONS (4)
  - BURN INFECTION [None]
  - DECREASED APPETITE [None]
  - INSOMNIA [None]
  - STAPHYLOCOCCAL INFECTION [None]
